FAERS Safety Report 4712615-1 (Version None)
Quarter: 2005Q3

REPORT INFORMATION
  Report Type: 
  Country: None (occurrence: None)
  Receive Date: 20050712
  Receipt Date: 20050308
  Transmission Date: 20060218
  Serious: Yes (Hospitalization)
  Sender: FDA-Public Use
  Company Number: US-MERCK-0503USA01344

PATIENT
  Age: 62 Year
  Sex: Female
  Weight: 75 kg

DRUGS (7)
  1. VIOXX [Suspect]
     Indication: ARTHRITIS
     Route: 048
     Dates: start: 19990727, end: 20040401
  2. VIOXX [Suspect]
     Route: 048
     Dates: start: 19990727, end: 20040301
  3. VIOXX [Suspect]
     Indication: ARTHRALGIA
     Route: 048
     Dates: start: 19990727, end: 20040401
  4. VIOXX [Suspect]
     Route: 048
     Dates: start: 19990727, end: 20040301
  5. XALATAN [Concomitant]
     Route: 065
  6. TIMOPTIC [Concomitant]
     Route: 065
  7. TOPROL-XL [Concomitant]
     Route: 048

REACTIONS (7)
  - ANXIETY [None]
  - ARTHROPATHY [None]
  - CORONARY ARTERY DISEASE [None]
  - DEPRESSION [None]
  - GLUCOSE TOLERANCE IMPAIRED [None]
  - HYPERLIPIDAEMIA [None]
  - MYOCARDIAL INFARCTION [None]
